FAERS Safety Report 18212481 (Version 1)
Quarter: 2020Q3

REPORT INFORMATION
  Report Type: Spontaneous
  Country: US (occurrence: US)
  Receive Date: 20200828
  Receipt Date: 20200828
  Transmission Date: 20201103
  Serious: Yes (Hospitalization, Other)
  Sender: FDA-Public Use
  Company Number: None

PATIENT
  Age: 36 Year
  Sex: Female

DRUGS (10)
  1. LEVOFLOXACIN. [Concomitant]
     Active Substance: LEVOFLOXACIN
  2. ORENCIA [Suspect]
     Active Substance: ABATACEPT
     Indication: RHEUMATOID ARTHRITIS
     Dosage: ?          OTHER FREQUENCY:ONCE WEEKLY;?
     Route: 058
     Dates: start: 20200309
  3. CARVEDILOL. [Concomitant]
     Active Substance: CARVEDILOL
  4. DICLOFENAC GEL [Concomitant]
     Active Substance: DICLOFENAC
  5. APAP/CODEINE [Concomitant]
     Active Substance: ACETAMINOPHEN\CODEINE PHOSPHATE
  6. COLESEVELAM [Concomitant]
     Active Substance: COLESEVELAM
  7. FOLIC ACID. [Concomitant]
     Active Substance: FOLIC ACID
  8. PREDNISONE. [Concomitant]
     Active Substance: PREDNISONE
  9. OXYCODONE AND ACETAMINOPHEN [Concomitant]
     Active Substance: ACETAMINOPHEN\OXYCODONE HYDROCHLORIDE
  10. METHOTREXATE. [Concomitant]
     Active Substance: METHOTREXATE

REACTIONS (4)
  - Thrombosis [None]
  - Lung disorder [None]
  - Prolapse [None]
  - Therapy interrupted [None]

NARRATIVE: CASE EVENT DATE: 20200811
